FAERS Safety Report 7868087-1 (Version None)
Quarter: 2011Q4

REPORT INFORMATION
  Report Type: 
  Country: None (occurrence: None)
  Receive Date: 20111028
  Receipt Date: 20111019
  Transmission Date: 20120403
  Serious: Yes (Other)
  Sender: FDA-Public Use
  Company Number: US-ASTRAZENECA-2011SE63239

PATIENT
  Age: 64 Year
  Sex: Female
  Weight: 73.5 kg

DRUGS (4)
  1. BLOOD PRESSURE MEDICATION [Concomitant]
     Indication: BLOOD PRESSURE ABNORMAL
  2. NEXIUM [Suspect]
     Indication: GASTROOESOPHAGEAL REFLUX DISEASE
     Route: 048
     Dates: start: 20050101
  3. SYNTHROID [Concomitant]
     Indication: CUSHING'S SYNDROME
  4. LISINOPRIL [Suspect]
     Route: 048

REACTIONS (10)
  - LOWER LIMB FRACTURE [None]
  - FALL [None]
  - FRACTURE [None]
  - BLOOD CHOLESTEROL INCREASED [None]
  - WRIST FRACTURE [None]
  - OSTEOPENIA [None]
  - CLAVICLE FRACTURE [None]
  - BONE DISORDER [None]
  - HYPERTENSION [None]
  - INAPPROPRIATE SCHEDULE OF DRUG ADMINISTRATION [None]
